FAERS Safety Report 8181995-X (Version None)
Quarter: 2012Q1

REPORT INFORMATION
  Report Type: 
  Country: None (occurrence: None)
  Receive Date: 20120302
  Receipt Date: 20120223
  Transmission Date: 20120608
  Serious: Yes (Hospitalization, Other)
  Sender: FDA-Public Use
  Company Number: CA-ROCHE-1003263

PATIENT
  Sex: Female

DRUGS (8)
  1. ADVAIR DISKUS 100/50 [Concomitant]
  2. BOTOX [Concomitant]
  3. METHACHOLINE CHLORIDE [Suspect]
     Indication: PRODUCT USED FOR UNKNOWN INDICATION
     Route: 065
  4. PREDNISONE TAB [Concomitant]
  5. MOMETASONE FUROATE [Concomitant]
     Route: 045
  6. XOLAIR [Suspect]
     Indication: ASTHMA
     Route: 058
     Dates: start: 20110811
  7. SPIRIVA [Concomitant]
  8. THEOPHYLLINE [Concomitant]

REACTIONS (7)
  - MALAISE [None]
  - ASTHMA [None]
  - VIRAL INFECTION [None]
  - RESPIRATORY FAILURE [None]
  - FATIGUE [None]
  - DYSPHONIA [None]
  - VOCAL CORD DISORDER [None]
